FAERS Safety Report 12894200 (Version 1)
Quarter: 2016Q4

REPORT INFORMATION
  Report Type: Spontaneous
  Country: US (occurrence: US)
  Receive Date: 20161028
  Receipt Date: 20161028
  Transmission Date: 20170207
  Serious: Yes (Hospitalization, Other)
  Sender: FDA-Public Use
  Company Number: US-SAOL THERAPEUTICS-2016SAO00904

PATIENT
  Sex: Male

DRUGS (2)
  1. BACLOFEN. [Suspect]
     Active Substance: BACLOFEN
     Indication: MUSCLE SPASTICITY
     Dosage: 1079.2 ?G, /DAY
     Route: 037
  2. MORPHINE [Suspect]
     Active Substance: MORPHINE
     Dosage: 0.809 MG, \DAY
     Route: 037

REACTIONS (6)
  - Bacteraemia [Recovered/Resolved]
  - Sepsis [Recovered/Resolved]
  - Device connection issue [Recovered/Resolved]
  - Somnolence [Recovered/Resolved]
  - Urinary tract infection [Recovered/Resolved]
  - Overdose [Recovered/Resolved]
